FAERS Safety Report 22031207 (Version 1)
Quarter: 2023Q1

REPORT INFORMATION
  Report Type: Spontaneous
  Country: US (occurrence: US)
  Receive Date: 20230223
  Receipt Date: 20230223
  Transmission Date: 20230417
  Serious: No
  Sender: FDA-Public Use
  Company Number: US-009507513-2302USA005395

PATIENT
  Age: 64 Year
  Sex: Male

DRUGS (2)
  1. CUBICIN [Suspect]
     Active Substance: DAPTOMYCIN
     Indication: Enterococcal infection
     Dosage: 10 MILLIGRAM/KILOGRAM
  2. CUBICIN [Suspect]
     Active Substance: DAPTOMYCIN
     Dosage: 12 MG/KG/D

REACTIONS (1)
  - Product use in unapproved indication [Unknown]
